FAERS Safety Report 8759832 (Version 4)
Quarter: 2014Q1

REPORT INFORMATION
  Report Type: Report from Study
  Country: JP (occurrence: JP)
  Receive Date: 20120829
  Receipt Date: 20140124
  Transmission Date: 20141002
  Serious: Yes (Hospitalization)
  Sender: FDA-Public Use
  Company Number: JP-VERTEX PHARMACEUTICAL INC.-2012-020103

PATIENT
  Age: 64 Year
  Sex: Male

DRUGS (5)
  1. VX-950 (TELAPREVIR) [Suspect]
     Indication: CHRONIC HEPATITIS C
     Dosage: 2250 MG, QD
     Route: 048
     Dates: start: 20120807, end: 20120810
  2. PEGINTERFERON ALFA-2B [Concomitant]
     Dosage: 1.4 ?G/KG, QW
     Route: 058
     Dates: start: 20120807, end: 20120807
  3. RIBAVIRIN [Concomitant]
     Dosage: 800 MG, UNK
     Route: 048
     Dates: start: 20120807, end: 20120810
  4. LOXONIN [Concomitant]
     Dosage: 1 UNK, UNK
     Route: 048
     Dates: start: 20120809, end: 20120809
  5. TENORMIN [Concomitant]
     Dosage: 25 MG, QD
     Route: 048

REACTIONS (1)
  - Renal disorder [Recovered/Resolved]
